FAERS Safety Report 4380908-6 (Version None)
Quarter: 2004Q2

REPORT INFORMATION
  Report Type: 
  Country: None (occurrence: None)
  Receive Date: 20040616
  Receipt Date: 20040606
  Transmission Date: 20050107
  Serious: Yes (Death)
  Sender: FDA-Public Use
  Company Number: 2004037681

PATIENT
  Age: 82 Year
  Sex: Female

DRUGS (1)
  1. NORVASC [Suspect]
     Indication: HYPERTENSION
     Dosage: 5 MG (5 MG, 1 IN 1 D), ORAL
     Route: 048
     Dates: start: 20040516, end: 20040601

REACTIONS (4)
  - CEREBROVASCULAR ACCIDENT [None]
  - COMA HEPATIC [None]
  - PEPTIC ULCER [None]
  - PULMONARY EMBOLISM [None]
